FAERS Safety Report 15022650 (Version 1)
Quarter: 2018Q2

REPORT INFORMATION
  Report Type: Spontaneous
  Country: ZA (occurrence: ZA)
  Receive Date: 20180618
  Receipt Date: 20180618
  Transmission Date: 20180711
  Serious: Yes (Other)
  Sender: FDA-Public Use
  Company Number: ZA-PFIZER INC-2018240873

PATIENT
  Age: 80 Year
  Sex: Male

DRUGS (5)
  1. ECOTRIN [Suspect]
     Active Substance: ASPIRIN
     Dosage: 81 MG, UNK
  2. ASPAVOR [Suspect]
     Active Substance: ATORVASTATIN
     Dosage: 20 MG, UNK
  3. BIO ATENOLOL [Suspect]
     Active Substance: ATENOLOL
     Dosage: 50 MG, UNK
  4. RIDAQ [Suspect]
     Active Substance: HYDROCHLOROTHIAZIDE
     Dosage: 12.5 MG, UNK
  5. ALTOSEC /00661201/ [Suspect]
     Active Substance: OMEPRAZOLE
     Dosage: 20 MG, UNK

REACTIONS (1)
  - Recurrent cancer [Unknown]
